FAERS Safety Report 9342844 (Version 3)
Quarter: 2013Q3

REPORT INFORMATION
  Report Type: Spontaneous
  Country: US (occurrence: US)
  Receive Date: 20130611
  Receipt Date: 20130723
  Transmission Date: 20140515
  Serious: Yes (Other)
  Sender: FDA-Public Use
  Company Number: US-GLAXOSMITHKLINE-A1025846A

PATIENT
  Age: 65 Year
  Sex: Female

DRUGS (7)
  1. ADVAIR [Suspect]
     Indication: CHRONIC OBSTRUCTIVE PULMONARY DISEASE
     Dosage: 1PUFF TWICE PER DAY
     Route: 055
     Dates: start: 20111009
  2. ALBUTEROL [Concomitant]
  3. NORCO [Concomitant]
  4. LOSARTAN [Concomitant]
  5. VITAMIN B12 [Concomitant]
  6. FORTEO [Concomitant]
  7. IPRATROPIUM [Concomitant]

REACTIONS (4)
  - Dyspnoea [Recovered/Resolved]
  - Drug ineffective [Recovered/Resolved]
  - Product quality issue [Unknown]
  - Drug administration error [Recovered/Resolved]
